FAERS Safety Report 4358491-0 (Version None)
Quarter: 2004Q2

REPORT INFORMATION
  Report Type: 
  Country: None (occurrence: None)
  Receive Date: 20040511
  Receipt Date: 20040426
  Transmission Date: 20050107
  Serious: Yes (Other)
  Sender: FDA-Public Use
  Company Number: 2004028843

PATIENT
  Age: 47 Year
  Sex: Female
  Weight: 88.9 kg

DRUGS (9)
  1. GEMFIBROZIL [Suspect]
     Indication: ILL-DEFINED DISORDER
     Dosage: 600 MG (1 IN 1 D)
     Dates: start: 20010403
  2. SIMVASTATIN [Suspect]
     Indication: ILL-DEFINED DISORDER
     Dosage: 10 MG (1 IN 1 D), ORAL
     Route: 048
     Dates: start: 20001201, end: 20010101
  3. BETAHISTINE HYDROCHLORIDE (BETAHISTINE HYDROCHLORIDE) [Suspect]
     Indication: DIZZINESS
     Dosage: 48 MG (16 MG, 3 IN 1 D)
     Dates: start: 20010101
  4. BETAHISTINE HYDROCHLORIDE (BETAHISTINE HYDROCHLORIDE) [Suspect]
     Indication: POSITIVE ROMBERGISM
     Dosage: 48 MG (16 MG, 3 IN 1 D)
     Dates: start: 20010101
  5. BETAHISTINE HYDROCHLORIDE (BETAHISTINE HYDROCHLORIDE) [Suspect]
     Indication: TINNITUS
     Dosage: 48 MG (16 MG, 3 IN 1 D)
     Dates: start: 20010101
  6. THIORIDAZINE HCL [Concomitant]
  7. SALBUTAMOL (SALBUTAMOL) [Concomitant]
  8. CLOMIPRAMINE HCL [Concomitant]
  9. LITHIUM CARBONATE [Concomitant]

REACTIONS (11)
  - BLOOD CHOLESTEROL INCREASED [None]
  - BURNING SENSATION [None]
  - CONTUSION [None]
  - DIZZINESS [None]
  - EXTRASYSTOLES [None]
  - FEELING ABNORMAL [None]
  - POSITIVE ROMBERGISM [None]
  - SENSATION OF PRESSURE [None]
  - TINNITUS [None]
  - VISION BLURRED [None]
  - WEIGHT DECREASED [None]
